FAERS Safety Report 5903875-X (Version None)
Quarter: 2008Q3

REPORT INFORMATION
  Report Type: 
  Country: None (occurrence: None)
  Receive Date: 20080919
  Receipt Date: 20080606
  Transmission Date: 20090109
  Serious: No
  Sender: FDA-Public Use
  Company Number: US-WYE-H04410908

PATIENT
  Age: 67 Year
  Sex: Male

DRUGS (11)
  1. PRISTIQ (DESVENLAFAXINE SUCCINATE MONOHYDRATE [Suspect]
     Dosage: 50 MG (FREQUENCY UNSPECIFIED), ORAL
     Route: 048
     Dates: start: 20080529, end: 20080606
  2. PLAVIX [Concomitant]
  3. MICARDIS [Concomitant]
  4. NOVOLOG [Concomitant]
  5. ZYRTEC [Concomitant]
  6. NITROGLYCERIN [Concomitant]
  7. DOXEPIN HCL [Concomitant]
  8. ISORDIL [Concomitant]
  9. LIPITOR [Concomitant]
  10. METOPROLOL TARTRATE [Concomitant]
  11. MIRALAX [Concomitant]

REACTIONS (3)
  - CONDITION AGGRAVATED [None]
  - DIABETES MELLITUS [None]
  - INSOMNIA [None]
